FAERS Safety Report 12401649 (Version 1)
Quarter: 2016Q2

REPORT INFORMATION
  Report Type: Spontaneous
  Country: US (occurrence: US)
  Receive Date: 20160525
  Receipt Date: 20160525
  Transmission Date: 20160815
  Serious: No
  Sender: FDA-Public Use
  Company Number: US-MDT-ADR-2015-02417

PATIENT
  Age: 60 Year
  Sex: Female

DRUGS (6)
  1. LIORESAL [Suspect]
     Active Substance: BACLOFEN
     Dosage: 137.38 MCG/DAY
     Route: 037
  2. CLEOCIN [Suspect]
     Active Substance: CLINDAMYCIN PHOSPHATE
  3. RECLAST [Suspect]
     Active Substance: ZOLEDRONIC ACID
  4. LEVSIN [Suspect]
     Active Substance: HYOSCYAMINE SULFATE
  5. DITROPAN XL [Suspect]
     Active Substance: OXYBUTYNIN CHLORIDE
  6. PERCOCET [Suspect]
     Active Substance: ACETAMINOPHEN\OXYCODONE HYDROCHLORIDE

REACTIONS (1)
  - Diarrhoea [Recovered/Resolved]

NARRATIVE: CASE EVENT DATE: 20151212
